FAERS Safety Report 17114624 (Version 1)
Quarter: 2019Q4

REPORT INFORMATION
  Report Type: Spontaneous
  Country: US (occurrence: US)
  Receive Date: 20191205
  Receipt Date: 20191205
  Transmission Date: 20200122
  Serious: Yes (Death, Other)
  Sender: FDA-Public Use
  Company Number: US-MICRO LABS LIMITED-ML2019-03506

PATIENT
  Age: 44 Year
  Sex: Female

DRUGS (9)
  1. LEVETIRACETAM. [Suspect]
     Active Substance: LEVETIRACETAM
  2. OXYCODONE [Suspect]
     Active Substance: OXYCODONE
  3. GABAPENTIN. [Suspect]
     Active Substance: GABAPENTIN
  4. FLUOXETINE [Suspect]
     Active Substance: FLUOXETINE HYDROCHLORIDE
  5. 7-AMINOCLONAZEPAM [Suspect]
     Active Substance: 7-AMINOCLONAZEPAM
  6. CLONAZEPAM. [Suspect]
     Active Substance: CLONAZEPAM
  7. NORFLUOXETINE [Suspect]
     Active Substance: NORFLUOXETINE
  8. NORTRIPTYLINE [Suspect]
     Active Substance: NORTRIPTYLINE
  9. AMITRIPTYLINE [Suspect]
     Active Substance: AMITRIPTYLINE

REACTIONS (1)
  - Toxicity to various agents [Fatal]
